FAERS Safety Report 20649217 (Version 2)
Quarter: 2022Q2

REPORT INFORMATION
  Report Type: Spontaneous
  Country: US (occurrence: US)
  Receive Date: 20220329
  Receipt Date: 20220505
  Transmission Date: 20220720
  Serious: No
  Sender: FDA-Public Use
  Company Number: US-PFIZER INC-202200474443

PATIENT
  Age: 66 Year
  Sex: Female
  Weight: 66.68 kg

DRUGS (1)
  1. PAXLOVID [Suspect]
     Active Substance: NIRMATRELVIR\RITONAVIR
     Indication: COVID-19
     Dosage: 5 DF, 1X/DAY, [TAKE ALL 3 DOSES AT SAME TIME, 2 TABLETS IN MORNING + 3 TABLETS IN EVENING]
     Dates: start: 20220324

REACTIONS (4)
  - Incorrect dose administered [Unknown]
  - Dysgeusia [Not Recovered/Not Resolved]
  - Product taste abnormal [Not Recovered/Not Resolved]
  - Insomnia [Unknown]

NARRATIVE: CASE EVENT DATE: 20220324
